FAERS Safety Report 6211229-4 (Version None)
Quarter: 2009Q2

REPORT INFORMATION
  Report Type: 
  Country: None (occurrence: None)
  Receive Date: 20090602
  Receipt Date: 20090522
  Transmission Date: 20091009
  Serious: Yes (Other)
  Sender: FDA-Public Use
  Company Number: ES-SOLVAY-00309002807

PATIENT
  Sex: Male

DRUGS (2)
  1. TESTOSTERONE [Suspect]
     Indication: HYPOGONADISM
     Dosage: DAILY DOSE:  UNKNOWN
     Route: 062
     Dates: start: 20081101, end: 20090101
  2. REANDRON [Suspect]
     Indication: HYPOGONADISM
     Dosage: DAILY DOSE: UNKNOWN
     Route: 030
     Dates: start: 20090201

REACTIONS (2)
  - BLOOD TESTOSTERONE DECREASED [None]
  - DRUG INEFFECTIVE [None]
